FAERS Safety Report 26188937 (Version 1)
Quarter: 2025Q4

REPORT INFORMATION
  Report Type: Report from Study
  Country: KE (occurrence: KE)
  Receive Date: 20251223
  Receipt Date: 20251223
  Transmission Date: 20260118
  Serious: Yes (Hospitalization)
  Sender: ALEXION PHARMACEUTICALS
  Company Number: KE-AstraZeneca-CH-01015352A

PATIENT
  Age: 70 Year
  Sex: Female

DRUGS (1)
  1. OSIMERTINIB [Suspect]
     Active Substance: OSIMERTINIB
     Indication: Non-small cell lung cancer metastatic
     Dosage: 80 MILLIGRAM, QD
     Route: 061
     Dates: start: 20241211

REACTIONS (2)
  - Peripheral swelling [Unknown]
  - Swelling [Unknown]

NARRATIVE: CASE EVENT DATE: 20251211
